FAERS Safety Report 20895398 (Version 1)
Quarter: 2022Q2

REPORT INFORMATION
  Report Type: Spontaneous
  Country: BE (occurrence: BE)
  Receive Date: 20220531
  Receipt Date: 20220531
  Transmission Date: 20220721
  Serious: Yes (Other)
  Sender: FDA-Public Use
  Company Number: BE-MYLANLABS-2022M1039911

PATIENT
  Age: 53 Year
  Sex: Male

DRUGS (3)
  1. PACLITAXEL [Suspect]
     Active Substance: PACLITAXEL
     Indication: Solitary fibrous tumour
     Dosage: 80 MILLIGRAM/SQ. METER, QW
     Route: 065
  2. CYCLOPHOSPHAMIDE [Suspect]
     Active Substance: CYCLOPHOSPHAMIDE
     Indication: Solitary fibrous tumour
     Dosage: 200 MILLIGRAM, QD
     Route: 065
  3. PAZOPANIB [Concomitant]
     Active Substance: PAZOPANIB
     Indication: Solitary fibrous tumour
     Dosage: UNK
     Route: 065

REACTIONS (1)
  - Drug ineffective [Unknown]
